FAERS Safety Report 16700112 (Version 2)
Quarter: 2019Q3

REPORT INFORMATION
  Report Type: Spontaneous
  Country: IT (occurrence: IT)
  Receive Date: 20190813
  Receipt Date: 20190813
  Transmission Date: 20191004
  Serious: Yes (Other)
  Sender: FDA-Public Use
  Company Number: PHHY2019IT186230

PATIENT
  Age: 82 Year
  Sex: Female

DRUGS (1)
  1. TOBRAL [Suspect]
     Active Substance: TOBRAMYCIN
     Indication: CONJUNCTIVITIS
     Dosage: 1 GTT, QD
     Route: 047
     Dates: start: 20190726, end: 20190728

REACTIONS (2)
  - Periorbital oedema [Recovering/Resolving]
  - Erythema of eyelid [Recovering/Resolving]

NARRATIVE: CASE EVENT DATE: 20190727
